FAERS Safety Report 11970219 (Version 1)
Quarter: 2016Q1

REPORT INFORMATION
  Report Type: Spontaneous
  Country: US (occurrence: None)
  Receive Date: 20160127
  Receipt Date: 20160127
  Transmission Date: 20160526
  Serious: Yes (Life-Threatening, Hospitalization)
  Sender: FDA-Public Use
  Company Number: None

PATIENT
  Age: 61 Year
  Sex: Male
  Weight: 109.1 kg

DRUGS (3)
  1. BUPROPION. [Suspect]
     Active Substance: BUPROPION
     Dosage: MG PO
     Route: 048
     Dates: start: 20130401
  2. LISINOPRIL. [Suspect]
     Active Substance: LISINOPRIL
     Indication: SMOKING CESSATION THERAPY
     Route: 048
     Dates: start: 20151012
  3. LISINOPRIL. [Suspect]
     Active Substance: LISINOPRIL
     Indication: HYPERTENSION
     Route: 048
     Dates: start: 20151012

REACTIONS (2)
  - Angioedema [None]
  - Respiratory depression [None]

NARRATIVE: CASE EVENT DATE: 20151130
